FAERS Safety Report 7051684-3 (Version None)
Quarter: 2010Q4

REPORT INFORMATION
  Report Type: 
  Country: None (occurrence: None)
  Receive Date: 20101019
  Receipt Date: 20101014
  Transmission Date: 20110411
  Serious: Yes (Life-Threatening)
  Sender: FDA-Public Use
  Company Number: JP-SANOFI-AVENTIS-2010SA062669

PATIENT
  Age: 48 Year
  Sex: Male
  Weight: 57 kg

DRUGS (5)
  1. OXALIPLATIN [Suspect]
     Indication: COLON CANCER
     Route: 041
     Dates: start: 20100827, end: 20100827
  2. FLUOROURACIL [Suspect]
     Indication: COLON CANCER
     Route: 040
     Dates: start: 20100827, end: 20100827
  3. FLUOROURACIL [Suspect]
     Route: 041
     Dates: start: 20100827, end: 20100827
  4. CALCIUM LEVOFOLINATE [Concomitant]
     Indication: COLON CANCER
     Route: 041
     Dates: start: 20100827, end: 20100827
  5. DEXAMETHASONE SODIUM PHOSPHATE [Concomitant]
     Indication: PREMEDICATION
     Route: 041
     Dates: start: 20100827, end: 20100827

REACTIONS (1)
  - HYPERAMMONAEMIA [None]
